FAERS Safety Report 19538030 (Version 1)
Quarter: 2021Q3

REPORT INFORMATION
  Report Type: Spontaneous
  Country: US (occurrence: US)
  Receive Date: 20210713
  Receipt Date: 20210713
  Transmission Date: 20211014
  Serious: Yes (Hospitalization)
  Sender: FDA-Public Use
  Company Number: None

PATIENT
  Sex: Male

DRUGS (10)
  1. RANEXA [Concomitant]
     Active Substance: RANOLAZINE
  2. IRON [Concomitant]
     Active Substance: IRON
  3. NITROGLYCERIN. [Concomitant]
     Active Substance: NITROGLYCERIN
  4. ASPIRIN. [Concomitant]
     Active Substance: ASPIRIN
  5. FISH OIL [Concomitant]
     Active Substance: FISH OIL
  6. INLYTA [Suspect]
     Active Substance: AXITINIB
     Indication: RENAL CANCER
     Route: 048
     Dates: start: 20210220
  7. GLIMEPIRIDE. [Concomitant]
     Active Substance: GLIMEPIRIDE
  8. HUMALOG [Concomitant]
     Active Substance: INSULIN LISPRO
  9. IRBESARTAN. [Concomitant]
     Active Substance: IRBESARTAN
  10. LUTEIN [Concomitant]
     Active Substance: LUTEIN

REACTIONS (2)
  - Gastrointestinal haemorrhage [None]
  - Drug ineffective [None]
